FAERS Safety Report 7543400-3 (Version None)
Quarter: 2011Q2

REPORT INFORMATION
  Report Type: 
  Country: None (occurrence: None)
  Receive Date: 20110613
  Receipt Date: 20110609
  Transmission Date: 20111010
  Serious: Yes (Hospitalization)
  Sender: FDA-Public Use
  Company Number: US-PFIZER INC-2008018252

PATIENT
  Sex: Female
  Weight: 77.098 kg

DRUGS (6)
  1. GABAPENTIN [Suspect]
     Indication: PAIN
     Dosage: 100 MG DAILY
  2. GABAPENTIN [Suspect]
     Dosage: 300 MG, 2X/DAY
     Route: 048
  3. GABAPENTIN [Suspect]
     Dosage: 300 MG, 2X/DAY
  4. CLARINEX [Concomitant]
     Indication: HYPERSENSITIVITY
     Dosage: 5 MG, DAILY
  5. ZESTRIL [Concomitant]
     Indication: HYPERTENSION
     Dosage: 20 MG, DAILY
  6. GABAPENTIN [Suspect]
     Dosage: UNK
     Dates: end: 20110401

REACTIONS (4)
  - MALAISE [None]
  - DRUG INEFFECTIVE [None]
  - NERVOUS SYSTEM DISORDER [None]
  - PAIN [None]
